FAERS Safety Report 12732515 (Version 1)
Quarter: 2016Q3

REPORT INFORMATION
  Report Type: Spontaneous
  Country: US (occurrence: US)
  Receive Date: 20160912
  Receipt Date: 20160912
  Transmission Date: 20161109
  Serious: Yes (Other)
  Sender: FDA-Public Use
  Company Number: None

PATIENT
  Age: 83 Year
  Sex: Female
  Weight: 70.31 kg

DRUGS (18)
  1. SUSTANE EYE DROPS [Concomitant]
  2. VOLTAREN [Concomitant]
     Active Substance: DICLOFENAC SODIUM
  3. ASPIRIN. [Concomitant]
     Active Substance: ASPIRIN
  4. CENTRUM SILVER [Concomitant]
     Active Substance: MINERALS\VITAMINS
  5. OMEGA 3 KRILL OIL [Concomitant]
  6. CLOBETASO\L PROPIONATE [Concomitant]
  7. BIOTIN [Concomitant]
     Active Substance: BIOTIN
  8. METRONIDAZOLE. [Concomitant]
     Active Substance: METRONIDAZOLE
  9. VITAMIN E [Concomitant]
     Active Substance: .ALPHA.-TOCOPHEROL
  10. MAGNASIUM [Concomitant]
  11. OMEPRAZOLE. [Concomitant]
     Active Substance: OMEPRAZOLE
  12. OSCALULTRA WITH D3 [Concomitant]
  13. VITAMIN D3 [Concomitant]
     Active Substance: CHOLECALCIFEROL
  14. ONDANSETRON [Concomitant]
     Active Substance: ONDANSETRON
  15. PROLIA [Suspect]
     Active Substance: DENOSUMAB
     Indication: BONE DENSITY ABNORMAL
     Dosage: INJECCION TWICE A YEAR
     Dates: start: 20160505, end: 20160505
  16. CORTIZONE 10 [Concomitant]
     Active Substance: HYDROCORTISONE
  17. LISINOPRIL + HYDROCHLOROTHIAZIDE [Concomitant]
  18. TRAMADOL HCL [Concomitant]
     Active Substance: TRAMADOL HYDROCHLORIDE

REACTIONS (4)
  - Insomnia [None]
  - Pain [None]
  - Joint swelling [None]
  - Abasia [None]
